FAERS Safety Report 8528956-6 (Version None)
Quarter: 2012Q3

REPORT INFORMATION
  Report Type: 
  Country: None (occurrence: None)
  Receive Date: 20120723
  Receipt Date: 20120718
  Transmission Date: 20120928
  Serious: No
  Sender: FDA-Public Use
  Company Number: US-PFIZER INC-2012052613

PATIENT
  Sex: Female

DRUGS (1)
  1. CHANTIX [Suspect]
     Dosage: 1 MG, UNK

REACTIONS (5)
  - ABDOMINAL DISCOMFORT [None]
  - EMOTIONAL DISORDER [None]
  - NERVOUSNESS [None]
  - NIGHTMARE [None]
  - ABNORMAL DREAMS [None]
